FAERS Safety Report 7316172-5 (Version None)
Quarter: 2011Q1

REPORT INFORMATION
  Report Type: 
  Country: None (occurrence: None)
  Receive Date: 20110225
  Receipt Date: 20110211
  Transmission Date: 20110831
  Serious: Yes (Hospitalization)
  Sender: FDA-Public Use
  Company Number: DE-CELGENEUS-062-21880-11021487

PATIENT
  Age: 63 Year
  Sex: Female
  Weight: 70 kg

DRUGS (5)
  1. COTRIM [Concomitant]
     Indication: PROPHYLAXIS
     Route: 048
  2. PERANTIOL [Concomitant]
     Indication: PROPHYLAXIS
     Route: 048
  3. ARIXTRA [Concomitant]
     Indication: THROMBOSIS
     Route: 058
  4. CC-5013 [Suspect]
     Indication: MANTLE CELL LYMPHOMA
     Route: 048
     Dates: start: 20110117
  5. FOLSAN [Concomitant]
     Indication: PROPHYLAXIS
     Route: 048

REACTIONS (2)
  - ACUTE VESTIBULAR SYNDROME [None]
  - NAUSEA [None]
